FAERS Safety Report 23980526 (Version 1)
Quarter: 2024Q2

REPORT INFORMATION
  Report Type: Spontaneous
  Country: IN (occurrence: IN)
  Receive Date: 20240617
  Receipt Date: 20240617
  Transmission Date: 20240715
  Serious: Yes (Other)
  Sender: FDA-Public Use
  Company Number: IN-ALKEM LABORATORIES LIMITED-IN-ALKEM-2024-06166

PATIENT
  Age: 42 Year
  Sex: Male

DRUGS (7)
  1. CLOBAZAM [Suspect]
     Active Substance: CLOBAZAM
     Indication: Seizure
     Dosage: 10 MILLIGRAM, QD
     Route: 065
  2. LEVETIRACETAM [Suspect]
     Active Substance: LEVETIRACETAM
     Indication: Seizure
     Dosage: 1500 MILLIGRAM, QD
     Route: 065
  3. LEVETIRACETAM [Suspect]
     Active Substance: LEVETIRACETAM
     Dosage: 2 GRAM, QD
     Route: 065
  4. OXCARBAZEPINE [Suspect]
     Active Substance: OXCARBAZEPINE
     Indication: Seizure
     Dosage: 1200 MILLIGRAM/KILOGRAM, QD
     Route: 065
  5. PERAMPANEL [Suspect]
     Active Substance: PERAMPANEL
     Indication: Seizure
     Dosage: 2 MILLIGRAM, QD
     Route: 065
  6. PERAMPANEL [Suspect]
     Active Substance: PERAMPANEL
     Dosage: 6 MILLIGRAM, QD, (INCREASED WEEKLY)
     Route: 065
  7. PERAMPANEL [Suspect]
     Active Substance: PERAMPANEL
     Dosage: UNK, (DOSE TAPERED)
     Route: 065

REACTIONS (2)
  - Erectile dysfunction [Recovered/Resolved]
  - Drug ineffective [Recovered/Resolved]
